FAERS Safety Report 6408504-7 (Version None)
Quarter: 2009Q4

REPORT INFORMATION
  Report Type: 
  Country: None (occurrence: None)
  Receive Date: 20091021
  Receipt Date: 20091009
  Transmission Date: 20100525
  Serious: Yes (Other)
  Sender: FDA-Public Use
  Company Number: GB-BAYER-200935608GPV

PATIENT
  Age: 75 Year
  Sex: Male
  Weight: 93 kg

DRUGS (4)
  1. FLUDARABINE [Suspect]
     Indication: CHRONIC LYMPHOCYTIC LEUKAEMIA
     Dosage: CYCLES
     Route: 065
     Dates: start: 20090701
  2. CYCLOPHOSPHAMIDE [Suspect]
     Indication: CHRONIC LYMPHOCYTIC LEUKAEMIA
     Dosage: CYCLES
     Route: 065
     Dates: start: 20090701
  3. RITUXIMAB [Suspect]
     Indication: CHRONIC LYMPHOCYTIC LEUKAEMIA
     Dosage: CYCLES
     Route: 042
     Dates: start: 20090708, end: 20090708
  4. RITUXIMAB [Suspect]
     Route: 042
     Dates: start: 20090819, end: 20090819

REACTIONS (2)
  - CYTOKINE RELEASE SYNDROME [None]
  - HYPERSENSITIVITY [None]
